FAERS Safety Report 9691536 (Version 2)
Quarter: 2013Q4

REPORT INFORMATION
  Report Type: Spontaneous
  Country: IT (occurrence: IT)
  Receive Date: 20131115
  Receipt Date: 20131115
  Transmission Date: 20140711
  Serious: Yes (Hospitalization)
  Sender: FDA-Public Use
  Company Number: PHHY2013IT127747

PATIENT
  Age: 55 Year
  Sex: Female

DRUGS (2)
  1. BROMAZEPAM [Suspect]
     Indication: INTENTIONAL SELF-INJURY
     Dosage: 20 ML, ONCE/SINGLE
     Route: 048
     Dates: start: 20130527, end: 20130527
  2. SERTRALINE [Suspect]
     Dosage: 500 MG, ONCE/SINGLE
     Dates: start: 20130527, end: 20130527

REACTIONS (2)
  - Sopor [Recovered/Resolved]
  - Intentional self-injury [Recovered/Resolved]
